FAERS Safety Report 9927705 (Version 3)
Quarter: 2014Q2

REPORT INFORMATION
  Report Type: Spontaneous
  Country: JP (occurrence: JP)
  Receive Date: 20140227
  Receipt Date: 20140624
  Transmission Date: 20141212
  Serious: Yes (Death, Hospitalization, Other)
  Sender: FDA-Public Use
  Company Number: JP-ROCHE-1341377

PATIENT
  Age: 67 Year
  Sex: Male
  Weight: 51 kg

DRUGS (3)
  1. ACTEMRA [Suspect]
     Indication: RHEUMATOID ARTHRITIS
     Route: 041
     Dates: start: 20130322, end: 20131225
  2. PREDNISOLONE [Concomitant]
     Indication: JOINT SWELLING
     Route: 065
     Dates: start: 20120629
  3. RHEUMATREX [Concomitant]
     Indication: RHEUMATOID ARTHRITIS
     Route: 065
     Dates: start: 20120727, end: 20140115

REACTIONS (4)
  - Lung infection [Fatal]
  - Lung neoplasm malignant [Not Recovered/Not Resolved]
  - Bone neoplasm [Not Recovered/Not Resolved]
  - Metastases to central nervous system [Unknown]
